FAERS Safety Report 9531255 (Version 2)
Quarter: 2013Q3

REPORT INFORMATION
  Report Type: Spontaneous
  Country: IT (occurrence: None)
  Receive Date: 20130916
  Receipt Date: 20130923
  Transmission Date: 20140515
  Serious: Yes (Death)
  Sender: FDA-Public Use
  Company Number: SYM-2013-10626

PATIENT
  Age: 67 Year
  Sex: Male

DRUGS (6)
  1. FLUOROURACIL [Suspect]
     Indication: COLON CANCER
     Dosage: 5100 MG, EVERY CYCLE, IV
     Route: 042
     Dates: start: 20130808, end: 20130808
  2. BEVACIZUMAB [Suspect]
     Indication: COLON CANCER
     Dosage: 360 MG, EVERY CYCLE, IV
     Route: 042
     Dates: start: 20130808, end: 20130808
  3. OXALIPLATIN [Suspect]
     Indication: COLON CANCER
     Route: 042
     Dates: start: 20130808, end: 20130808
  4. FOLINIC ACID [Suspect]
     Indication: COLON CANCER
     Dosage: 365 MG, EVERY CYCLE, IV
     Route: 042
     Dates: start: 20130808, end: 20130808
  5. PLAUNAZIDE (BENICAR HCT) (HYDROCHLOROTHIAZIDE, OLMESARTAN MEDOXOMIL) [Concomitant]
  6. ZYLORIC (ALLOPURINOL) (ALLOPURINOL) [Concomitant]

REACTIONS (1)
  - Cardiac arrest [None]
